FAERS Safety Report 24797154 (Version 1)
Quarter: 2025Q1

REPORT INFORMATION
  Report Type: Spontaneous
  Country: SI (occurrence: SI)
  Receive Date: 20250101
  Receipt Date: 20250101
  Transmission Date: 20250408
  Serious: Yes (Hospitalization)
  Sender: SANDOZ
  Company Number: SI-ROCHE-10000162117

PATIENT
  Age: 63 Year
  Sex: Male
  Weight: 82 kg

DRUGS (6)
  1. AMIVANTAMAB [Suspect]
     Active Substance: AMIVANTAMAB
     Indication: Lung neoplasm malignant
     Route: 042
     Dates: start: 20240724
  2. PEMETREXED [Suspect]
     Active Substance: PEMETREXED
     Indication: Lung neoplasm malignant
     Route: 042
     Dates: start: 20240724
  3. DOXYCYCLINE [Concomitant]
     Active Substance: DOXYCYCLINE
     Indication: Product used for unknown indication
     Route: 065
     Dates: start: 20240724
  4. FOLIC ACID [Concomitant]
     Active Substance: FOLIC ACID
     Indication: Product used for unknown indication
     Route: 065
     Dates: start: 20240724
  5. LEVOTHYROXINE [Concomitant]
     Active Substance: LEVOTHYROXINE
     Indication: Hypothyroidism
     Dosage: DOSE 1 TABLET
     Route: 065
  6. XARELTO [Concomitant]
     Active Substance: RIVAROXABAN
     Indication: Embolism venous
     Dosage: 1.000DF QD
     Route: 065
     Dates: start: 20240925

REACTIONS (2)
  - Peritonitis [Recovering/Resolving]
  - Cholecystitis [Recovering/Resolving]

NARRATIVE: CASE EVENT DATE: 20241210
